FAERS Safety Report 11391359 (Version 1)
Quarter: 2015Q3

REPORT INFORMATION
  Report Type: Spontaneous
  Country: BE (occurrence: None)
  Receive Date: 20150813
  Receipt Date: 20150813
  Transmission Date: 20151125
  Serious: Yes (Hospitalization)
  Sender: FDA-Public Use
  Company Number: 2015HINLIT0666

PATIENT
  Age: 58 Year
  Sex: Female
  Weight: 64 kg

DRUGS (2)
  1. AMLODIPINE [Suspect]
     Active Substance: AMLODIPINE BESYLATE
     Indication: HYPERTENSION
     Route: 048
  2. VALSARTAN. [Suspect]
     Active Substance: VALSARTAN
     Indication: HYPERTENSION
     Route: 048

REACTIONS (13)
  - Metabolic acidosis [None]
  - Hypoxia [None]
  - Acute kidney injury [None]
  - Tachycardia [None]
  - Pleural effusion [None]
  - Blood lactate dehydrogenase increased [None]
  - Hypotension [None]
  - Cardiac index increased [None]
  - Hyperglycaemia [None]
  - Electrocardiogram QT prolonged [None]
  - Intentional overdose [None]
  - Drug interaction [None]
  - Distributive shock [None]
